FAERS Safety Report 14156679 (Version 2)
Quarter: 2017Q4

REPORT INFORMATION
  Report Type: Spontaneous
  Country: US (occurrence: US)
  Receive Date: 20171103
  Receipt Date: 20171212
  Transmission Date: 20180321
  Serious: No
  Sender: FDA-Public Use
  Company Number: US-009507513-1710USA002904

PATIENT
  Age: 20 Year
  Sex: Female
  Weight: 56.24 kg

DRUGS (1)
  1. NEXPLANON [Suspect]
     Active Substance: ETONOGESTREL
     Dosage: ONE IMPLANT, EVERY THREE YEARS
     Route: 058
     Dates: start: 20171005

REACTIONS (3)
  - Complication of device insertion [Recovered/Resolved]
  - Product quality issue [Unknown]
  - Implant site bruising [Unknown]

NARRATIVE: CASE EVENT DATE: 20171005
